FAERS Safety Report 14433704 (Version 4)
Quarter: 2018Q2

REPORT INFORMATION
  Report Type: Spontaneous
  Country: US (occurrence: US)
  Receive Date: 20180124
  Receipt Date: 20180606
  Transmission Date: 20180711
  Serious: Yes (Hospitalization)
  Sender: FDA-Public Use
  Company Number: US-VERTEX PHARMACEUTICALS-2018-000423

PATIENT
  Age: 10 Year
  Sex: Female

DRUGS (2)
  1. PULMOZYME [Concomitant]
     Active Substance: DORNASE ALFA
     Dosage: 2.5 MILLILITER, QD
     Route: 055
  2. ORKAMBI [Suspect]
     Active Substance: IVACAFTOR\LUMACAFTOR
     Indication: CYSTIC FIBROSIS
     Dosage: 2 DOSAGE FORM (100/125 MG EACH), BID
     Route: 048
     Dates: start: 201711

REACTIONS (4)
  - Chest discomfort [Recovered/Resolved]
  - Cystic fibrosis [Unknown]
  - Depressed mood [Unknown]
  - Cough [Recovered/Resolved]

NARRATIVE: CASE EVENT DATE: 201711
